FAERS Safety Report 4644132-1 (Version None)
Quarter: 2005Q2

REPORT INFORMATION
  Report Type: 
  Country: None (occurrence: None)
  Receive Date: 20050425
  Receipt Date: 20050309
  Transmission Date: 20051028
  Serious: Yes (Life-Threatening)
  Sender: FDA-Public Use
  Company Number: JP-GLAXOSMITHKLINE-B0374207A

PATIENT
  Age: 49 Year
  Sex: Male
  Weight: 70 kg

DRUGS (14)
  1. PAXIL [Suspect]
     Indication: DEPRESSION
     Route: 048
     Dates: start: 20050115
  2. CRAVIT [Suspect]
     Indication: UPPER RESPIRATORY TRACT INFLAMMATION
     Dosage: 33.3MG THREE TIMES PER DAY
     Route: 048
     Dates: start: 20050228, end: 20050302
  3. LOXONIN [Suspect]
     Indication: BACK PAIN
     Dosage: 20MG THREE TIMES PER DAY
     Route: 048
     Dates: start: 20050223, end: 20050225
  4. LOXONIN [Suspect]
     Indication: UPPER RESPIRATORY TRACT INFLAMMATION
     Dosage: 20MG THREE TIMES PER DAY
     Route: 048
     Dates: start: 20050228, end: 20050302
  5. SILECE [Concomitant]
     Indication: INSOMNIA
     Dosage: 1MG PER DAY
     Route: 048
     Dates: start: 20050105
  6. GOODMIN [Concomitant]
     Indication: INSOMNIA
     Dosage: 1MG PER DAY
     Route: 048
     Dates: start: 20050105
  7. MARZULENE [Concomitant]
     Indication: GASTRITIS
     Dosage: .99G PER DAY
     Route: 048
     Dates: start: 20050106
  8. DEPAS [Concomitant]
     Indication: ANXIETY
     Dosage: 1.5MG PER DAY
     Route: 048
     Dates: start: 20050106
  9. PREDONINE [Concomitant]
     Indication: HYPOTHYROIDISM
     Dosage: 5MG PER DAY
     Route: 048
     Dates: start: 20050106
  10. THYRADIN S [Concomitant]
     Indication: HYPOTHYROIDISM
     Dosage: 150MG PER DAY
     Route: 048
     Dates: start: 20050106
  11. RHYTHMY [Concomitant]
     Indication: INSOMNIA
     Dosage: 1MG PER DAY
     Route: 048
     Dates: start: 20050131
  12. GASTER D [Concomitant]
     Indication: GASTRITIS
     Dosage: 10MG PER DAY
     Route: 048
     Dates: start: 20050131
  13. MUCODYNE [Concomitant]
     Indication: UPPER RESPIRATORY TRACT INFLAMMATION
     Dosage: 249.99MG PER DAY
     Route: 048
     Dates: start: 20050228, end: 20050302
  14. DORAL [Concomitant]
     Indication: INSOMNIA
     Dosage: 15MG PER DAY
     Route: 048
     Dates: start: 20050302, end: 20050305

REACTIONS (7)
  - BACK PAIN [None]
  - EOSINOPENIA [None]
  - INSOMNIA [None]
  - NEUTROPENIA [None]
  - PYREXIA [None]
  - UPPER RESPIRATORY TRACT INFECTION [None]
  - WHITE BLOOD CELL COUNT DECREASED [None]
